FAERS Safety Report 10278450 (Version 2)
Quarter: 2014Q3

REPORT INFORMATION
  Report Type: Spontaneous
  Country: US (occurrence: US)
  Receive Date: 20140704
  Receipt Date: 20140728
  Transmission Date: 20150326
  Serious: Yes (Death, Other)
  Sender: FDA-Public Use
  Company Number: US-TAKEDA-2014TUS005568

PATIENT
  Sex: Female
  Weight: 91.16 kg

DRUGS (1)
  1. COLCRYS [Suspect]
     Active Substance: COLCHICINE
     Indication: GOUT
     Dosage: 0.6 MG, UNK
     Dates: start: 2007, end: 20140205

REACTIONS (3)
  - Cardiac failure congestive [Fatal]
  - Renal failure chronic [Fatal]
  - Hypoxia [Fatal]
